FAERS Safety Report 9156246 (Version 1)
Quarter: 2013Q1

REPORT INFORMATION
  Report Type: Spontaneous
  Country: US (occurrence: US)
  Receive Date: 20130123
  Receipt Date: 20130123
  Transmission Date: 20140127
  Serious: No
  Sender: FDA-Public Use
  Company Number: US-BRACCO-007282

PATIENT
  Age: 66 Year
  Sex: Male

DRUGS (1)
  1. MULTIHANCE [Suspect]
     Indication: DIAGNOSTIC PROCEDURE
     Route: 042
     Dates: start: 20111203, end: 20111203

REACTIONS (2)
  - Retching [Recovered/Resolved]
  - Increased upper airway secretion [Recovered/Resolved]
